FAERS Safety Report 5693359-9 (Version None)
Quarter: 2008Q2

REPORT INFORMATION
  Report Type: 
  Country: None (occurrence: None)
  Receive Date: 20080403
  Receipt Date: 20080102
  Transmission Date: 20081010
  Serious: No
  Sender: FDA-Public Use
  Company Number: US-BAYER-200810122NA

PATIENT
  Age: 40 Year
  Sex: Female
  Weight: 97 kg

DRUGS (6)
  1. MIRENA [Suspect]
     Indication: CONTRACEPTION
     Route: 015
     Dates: start: 20060128, end: 20080102
  2. LIPITOR [Concomitant]
  3. WELLBUTRIN [Concomitant]
  4. TOPROL-XL [Concomitant]
  5. ALDARA [Concomitant]
  6. LISINOPRIL [Concomitant]

REACTIONS (1)
  - INTRA-UTERINE CONTRACEPTIVE DEVICE EXPELLED [None]
